FAERS Safety Report 25217801 (Version 1)
Quarter: 2025Q2

REPORT INFORMATION
  Report Type: Spontaneous
  Country: US (occurrence: US)
  Receive Date: 20250420
  Receipt Date: 20250420
  Transmission Date: 20250717
  Serious: Yes (Other)
  Sender: ORGANON
  Company Number: US-ORGANON-O2504USA001907

PATIENT
  Sex: Female

DRUGS (2)
  1. NEXPLANON [Suspect]
     Active Substance: ETONOGESTREL
     Route: 059
     Dates: start: 20230111
  2. NEXPLANON [Concomitant]
     Active Substance: ETONOGESTREL
     Route: 059
     Dates: start: 2020, end: 20230111

REACTIONS (3)
  - Pregnancy with implant contraceptive [Not Recovered/Not Resolved]
  - Unintended pregnancy [Not Recovered/Not Resolved]
  - Device implantation error [Not Recovered/Not Resolved]

NARRATIVE: CASE EVENT DATE: 20230111
